FAERS Safety Report 5199960-3 (Version None)
Quarter: 2007Q1

REPORT INFORMATION
  Report Type: 
  Country: None (occurrence: None)
  Receive Date: 20070103
  Receipt Date: 20061221
  Transmission Date: 20070707
  Serious: Yes (Hospitalization)
  Sender: FDA-Public Use
  Company Number: 2006-06309

PATIENT
  Sex: Male

DRUGS (4)
  1. HYDROCODONE BITARTRATE/ACETAMINOPHEN 7.5/500 (WATSON LABORATORIES)(ACE [Suspect]
     Indication: PROCEDURAL PAIN
     Dosage: SEE IMAGE
     Route: 048
     Dates: start: 20061215, end: 20061215
  2. HYDROCODONE BITARTRATE/ACETAMINOPHEN 7.5/500 (WATSON LABORATORIES)(ACE [Suspect]
     Indication: PROCEDURAL PAIN
     Dosage: SEE IMAGE
     Route: 048
     Dates: start: 20061216, end: 20061216
  3. HYDROCODONE BITARTRATE/ACETAMINOPHEN 7.5/500 (WATSON LABORATORIES)(ACE [Suspect]
     Indication: PROCEDURAL PAIN
     Dosage: SEE IMAGE
     Route: 048
     Dates: start: 20061217, end: 20061217
  4. EX-LAX ^NOVARTIS^ [Concomitant]

REACTIONS (4)
  - ABDOMINAL PAIN LOWER [None]
  - ABDOMINAL PAIN UPPER [None]
  - BLOOD AMYLASE INCREASED [None]
  - CONSTIPATION [None]
